FAERS Safety Report 8491049-0 (Version None)
Quarter: 2012Q3

REPORT INFORMATION
  Report Type: 
  Country: None (occurrence: None)
  Receive Date: 20120706
  Receipt Date: 20120628
  Transmission Date: 20120928
  Serious: Yes (Other)
  Sender: FDA-Public Use
  Company Number: US-BAYER-2011-072529

PATIENT
  Age: 46 Year
  Sex: Female
  Weight: 66.667 kg

DRUGS (10)
  1. FLONASE [Concomitant]
     Dosage: UNK UNK, QD
     Route: 045
     Dates: start: 20050101
  2. CLARINEX [Concomitant]
     Dosage: UNK UNK, QD
     Route: 048
  3. LORTAB [Concomitant]
     Dosage: 5 MG, UNK
  4. NSAID'S [Concomitant]
     Dosage: UNK UNK, PRN
     Dates: start: 19900101
  5. MOTRIN [Concomitant]
     Dosage: 800 MG, UNK
  6. YAZ [Suspect]
     Indication: PREMENSTRUAL SYNDROME
  7. ZOMIG [Concomitant]
     Dosage: UNK
     Dates: start: 20050101, end: 20100101
  8. YAZ [Suspect]
     Indication: CONTRACEPTION
     Dosage: UNK
     Dates: start: 20090201, end: 20090801
  9. NASONEX [Concomitant]
     Dosage: UNK
     Dates: start: 20050101
  10. NAPROXEN [Concomitant]
     Dosage: 500 MG, BID
     Route: 048

REACTIONS (12)
  - INJURY [None]
  - PSYCHOLOGICAL TRAUMA [None]
  - PAIN IN EXTREMITY [None]
  - ANHEDONIA [None]
  - FEAR [None]
  - POST THROMBOTIC SYNDROME [None]
  - PAIN [None]
  - ANXIETY [None]
  - DEEP VEIN THROMBOSIS [None]
  - IMPAIRED WORK ABILITY [None]
  - MENTAL DISORDER [None]
  - MENOPAUSE [None]
